FAERS Safety Report 11259562 (Version 1)
Quarter: 2015Q3

REPORT INFORMATION
  Report Type: Spontaneous
  Country: US (occurrence: None)
  Receive Date: 20150709
  Receipt Date: 20150709
  Transmission Date: 20151125
  Serious: Yes (Other)
  Sender: FDA-Public Use
  Company Number: None

PATIENT
  Age: 68 Year
  Sex: Female
  Weight: 72.58 kg

DRUGS (3)
  1. LYNPARZA [Suspect]
     Active Substance: OLAPARIB
     Indication: DISEASE RECURRENCE
     Route: 048
     Dates: start: 20150221, end: 20150508
  2. ONDASETRON [Concomitant]
     Active Substance: ONDANSETRON
  3. LYNPARZA [Suspect]
     Active Substance: OLAPARIB
     Indication: OVARIAN CANCER
     Route: 048
     Dates: start: 20150221, end: 20150508

REACTIONS (1)
  - Anaemia [None]

NARRATIVE: CASE EVENT DATE: 20150508
